FAERS Safety Report 23921044 (Version 1)
Quarter: 2024Q2

REPORT INFORMATION
  Report Type: Spontaneous
  Country: US (occurrence: None)
  Receive Date: 20240530
  Receipt Date: 20240530
  Transmission Date: 20240716
  Serious: No
  Sender: FDA-Public Use
  Company Number: None

PATIENT
  Sex: Female

DRUGS (2)
  1. NUCALA [Suspect]
     Active Substance: MEPOLIZUMAB
     Indication: Asthma
     Dosage: FREQUENCY : MONTHLY;?
     Route: 058
     Dates: start: 202201
  2. DUPIXENT PEN 2-PAK [Concomitant]
     Dosage: FREQUENCY : MONTHLY;?
     Route: 058

REACTIONS (4)
  - Dyspnoea [None]
  - Treatment failure [None]
  - Vertigo [None]
  - Nausea [None]
